FAERS Safety Report 14225222 (Version 5)
Quarter: 2018Q4

REPORT INFORMATION
  Report Type: Spontaneous
  Country: EG (occurrence: EG)
  Receive Date: 20171127
  Receipt Date: 20181204
  Transmission Date: 20190204
  Serious: Yes (Disabling)
  Sender: FDA-Public Use
  Company Number: PHHY2017EG172253

PATIENT
  Age: 70 Year
  Sex: Male

DRUGS (3)
  1. CICLOPLEJICO [Suspect]
     Active Substance: CYCLOPENTOLATE HYDROCHLORIDE
     Indication: ULCERATIVE KERATITIS
     Route: 047
  2. VIGAMOX [Suspect]
     Active Substance: MOXIFLOXACIN HYDROCHLORIDE
     Indication: ULCERATIVE KERATITIS
     Dosage: UNK UNK, Q2H
     Route: 061
     Dates: start: 20171114, end: 20171121
  3. CORNETEARS [Concomitant]
     Indication: PRODUCT USED FOR UNKNOWN INDICATION
     Dosage: 5 TIMES
     Route: 061

REACTIONS (13)
  - Endophthalmitis [Recovered/Resolved with Sequelae]
  - Ocular hyperaemia [Recovered/Resolved with Sequelae]
  - Erythema [Recovered/Resolved with Sequelae]
  - Corneal infiltrates [Recovered/Resolved with Sequelae]
  - Eye discharge [Recovered/Resolved with Sequelae]
  - Suspected counterfeit product [Unknown]
  - Eye pain [Recovered/Resolved with Sequelae]
  - Conjunctival oedema [Recovered/Resolved with Sequelae]
  - Ulcerative keratitis [Recovered/Resolved with Sequelae]
  - Foreign body sensation in eyes [Recovered/Resolved with Sequelae]
  - Aqueous humour leakage [Recovered/Resolved with Sequelae]
  - Erythema of eyelid [Recovered/Resolved with Sequelae]
  - Eyelid oedema [Recovered/Resolved with Sequelae]

NARRATIVE: CASE EVENT DATE: 20171121
